FAERS Safety Report 23831223 (Version 1)
Quarter: 2024Q2

REPORT INFORMATION
  Report Type: Spontaneous
  Country: CA (occurrence: CA)
  Receive Date: 20240508
  Receipt Date: 20240508
  Transmission Date: 20240716
  Serious: Yes (Death)
  Sender: FDA-Public Use
  Company Number: CA-VELOXIS PHARMACEUTICALS, INC.-2024-VEL-00247

PATIENT
  Age: 63 Year
  Sex: Male

DRUGS (1)
  1. TACROLIMUS [Suspect]
     Active Substance: TACROLIMUS
     Indication: Renal transplant
     Dosage: PROLONGED-RELEASE TABLET, 15 MILLIGRAM
     Route: 048
     Dates: start: 20211231

REACTIONS (1)
  - Death [Fatal]
